FAERS Safety Report 19093710 (Version 2)
Quarter: 2021Q2

REPORT INFORMATION
  Report Type: Spontaneous
  Country: US (occurrence: US)
  Receive Date: 20210405
  Receipt Date: 20210623
  Transmission Date: 20210717
  Serious: Yes (Other)
  Sender: FDA-Public Use
  Company Number: US-TAKEDA-2021TUS021104

PATIENT

DRUGS (98)
  1. CELEBREX [Concomitant]
     Active Substance: CELECOXIB
     Dosage: UNK
     Dates: start: 20110321
  2. CELEBREX [Concomitant]
     Active Substance: CELECOXIB
     Dosage: UNK
     Dates: start: 20111013
  3. NAPROXEN. [Concomitant]
     Active Substance: NAPROXEN
     Dosage: UNK
     Dates: start: 20131122
  4. AZITHROMYCIN ANHYDROUS. [Concomitant]
     Active Substance: AZITHROMYCIN ANHYDROUS
     Dosage: UNK
     Dates: start: 20111226
  5. LEVOFLOXACIN. [Concomitant]
     Active Substance: LEVOFLOXACIN
     Dosage: UNK
     Dates: start: 20150723
  6. DOXEPIN [Concomitant]
     Active Substance: DOXEPIN
     Indication: DEPRESSION
     Dosage: UNK
     Dates: start: 20120510
  7. DOXEPIN [Concomitant]
     Active Substance: DOXEPIN
     Dosage: UNK
     Dates: start: 20120222
  8. CIMETIDINE [Concomitant]
     Active Substance: CIMETIDINE
     Dosage: UNK
     Dates: start: 2012
  9. TUMS [Concomitant]
     Active Substance: CALCIUM CARBONATE
     Dosage: UNK
     Dates: start: 2000
  10. GAVISCON [Concomitant]
     Active Substance: ALUMINUM HYDROXIDE\MAGNESIUM CARBONATE
     Indication: ANTACID THERAPY
     Dosage: UNK
     Dates: start: 2015
  11. GAVISCON [Concomitant]
     Active Substance: ALUMINUM HYDROXIDE\MAGNESIUM CARBONATE
     Dosage: UNK
     Dates: start: 1993
  12. THERA?PLUS [Concomitant]
     Indication: VITAMIN SUPPLEMENTATION
  13. IRON [Concomitant]
     Active Substance: IRON
     Indication: IRON DEFICIENCY
  14. TRAMADOL. [Concomitant]
     Active Substance: TRAMADOL
     Dosage: UNK
     Dates: start: 20180517
  15. AZITHROMYCIN ANHYDROUS. [Concomitant]
     Active Substance: AZITHROMYCIN ANHYDROUS
     Dosage: UNK
     Dates: start: 20120520
  16. CEPHALEXIN. [Concomitant]
     Active Substance: CEPHALEXIN
     Dosage: UNK
     Dates: start: 20130319
  17. LEVOFLOXACIN. [Concomitant]
     Active Substance: LEVOFLOXACIN
     Dosage: UNK
     Dates: start: 20140818
  18. ATORVASTATIN [Concomitant]
     Active Substance: ATORVASTATIN
     Indication: BLOOD CHOLESTEROL INCREASED
     Dosage: UNK
  19. TUMS [Concomitant]
     Active Substance: CALCIUM CARBONATE
     Dosage: UNK
     Dates: start: 1993
  20. GAVISCON [Concomitant]
     Active Substance: ALUMINUM HYDROXIDE\MAGNESIUM CARBONATE
     Dosage: UNK
     Dates: start: 2000
  21. ROLAIDS [Concomitant]
     Active Substance: CALCIUM CARBONATE\MAGNESIUM HYDROXIDE
     Dosage: UNK
     Dates: start: 1993
  22. FAMOTIDINE. [Concomitant]
     Active Substance: FAMOTIDINE
     Dosage: UNK
     Dates: start: 2017
  23. PROTONIX [Suspect]
     Active Substance: PANTOPRAZOLE SODIUM
     Indication: GASTROOESOPHAGEAL REFLUX DISEASE
     Dosage: 20 MILLIGRAM, BID
     Route: 048
     Dates: start: 20171101
  24. PROTONIX [Suspect]
     Active Substance: PANTOPRAZOLE SODIUM
     Dosage: 40 MILLIGRAM, QD
     Route: 048
     Dates: end: 20210210
  25. CELEBREX [Concomitant]
     Active Substance: CELECOXIB
     Dosage: UNK
     Dates: start: 20110419
  26. CELEBREX [Concomitant]
     Active Substance: CELECOXIB
     Dosage: UNK
     Dates: start: 20100622
  27. VOLTARENE [Concomitant]
     Indication: PAIN
     Dosage: UNK
     Dates: start: 20121105
  28. VOLTARENE [Concomitant]
     Dosage: UNK
     Dates: start: 20121226
  29. TRAMADOL. [Concomitant]
     Active Substance: TRAMADOL
     Dosage: UNK
     Dates: start: 20110712
  30. AZITHROMYCIN ANHYDROUS. [Concomitant]
     Active Substance: AZITHROMYCIN ANHYDROUS
     Indication: INFECTION
     Dosage: UNK
     Dates: start: 20110321
  31. CIPROFLOXACIN. [Concomitant]
     Active Substance: CIPROFLOXACIN
     Dosage: UNK
     Dates: start: 20131217
  32. CIPROFLOXACIN. [Concomitant]
     Active Substance: CIPROFLOXACIN
     Dosage: UNK
     Dates: start: 20120724
  33. CIPROFLOXACIN. [Concomitant]
     Active Substance: CIPROFLOXACIN
     Dosage: UNK
     Dates: start: 20111201
  34. LEVOFLOXACIN. [Concomitant]
     Active Substance: LEVOFLOXACIN
     Indication: INFECTION
     Dosage: UNK
     Dates: start: 20150824
  35. LISINOPRIL. [Concomitant]
     Active Substance: LISINOPRIL
     Indication: HYPERTENSION
     Dosage: UNK
     Dates: start: 20100112, end: 20190328
  36. DOXYCYCLINE. [Concomitant]
     Active Substance: DOXYCYCLINE
     Indication: INFECTION
     Dosage: UNK
     Dates: start: 20120424
  37. RANITIDINE HYDROCHLORIDE. [Concomitant]
     Active Substance: RANITIDINE HYDROCHLORIDE
     Dosage: UNK
     Dates: start: 2005
  38. PERCOCET [Concomitant]
     Active Substance: ACETAMINOPHEN\OXYCODONE HYDROCHLORIDE
     Indication: PAIN
     Dosage: UNK
     Dates: start: 2015, end: 2019
  39. NAPROXEN. [Concomitant]
     Active Substance: NAPROXEN
     Dosage: UNK
     Dates: start: 20131015
  40. TRAMADOL. [Concomitant]
     Active Substance: TRAMADOL
     Indication: PAIN
     Dosage: UNK
     Dates: start: 20100715
  41. TRAMADOL. [Concomitant]
     Active Substance: TRAMADOL
     Dosage: UNK
     Dates: start: 20190211
  42. AZITHROMYCIN ANHYDROUS. [Concomitant]
     Active Substance: AZITHROMYCIN ANHYDROUS
     Dosage: UNK
     Dates: start: 20141204
  43. AZITHROMYCIN ANHYDROUS. [Concomitant]
     Active Substance: AZITHROMYCIN ANHYDROUS
     Dosage: UNK
     Dates: start: 20171018
  44. AZITHROMYCIN ANHYDROUS. [Concomitant]
     Active Substance: AZITHROMYCIN ANHYDROUS
     Dosage: UNK
     Dates: start: 20150625
  45. DOXYCYCLINE MONOHYDRATE [Concomitant]
     Active Substance: DOXYCYCLINE
     Dosage: UNK
     Dates: start: 20160815
  46. SIMVASTATIN. [Concomitant]
     Active Substance: SIMVASTATIN
     Indication: BLOOD CHOLESTEROL INCREASED
     Dosage: UNK
  47. AMITRIPTYLINE [Concomitant]
     Active Substance: AMITRIPTYLINE
     Indication: DEPRESSION
     Dosage: UNK
     Dates: start: 20140902
  48. DOXEPIN [Concomitant]
     Active Substance: DOXEPIN
     Dosage: UNK
     Dates: start: 20120319
  49. DOXEPIN [Concomitant]
     Active Substance: DOXEPIN
     Dosage: UNK
     Dates: start: 20111221
  50. TYLENOL [Concomitant]
     Active Substance: ACETAMINOPHEN
     Indication: PAIN
  51. CELEBREX [Concomitant]
     Active Substance: CELECOXIB
     Indication: PAIN
     Dosage: UNK
     Dates: start: 20100422
  52. NAPROXEN. [Concomitant]
     Active Substance: NAPROXEN
     Indication: PAIN
     Dosage: UNK
     Dates: start: 20130920
  53. NAPROXEN. [Concomitant]
     Active Substance: NAPROXEN
     Dosage: UNK
     Dates: start: 20131223
  54. VOLTARENE [Concomitant]
     Dosage: UNK
     Dates: start: 20130225
  55. AZITHROMYCIN ANHYDROUS. [Concomitant]
     Active Substance: AZITHROMYCIN ANHYDROUS
     Dosage: UNK
     Dates: start: 20160728
  56. CEPHALEXIN. [Concomitant]
     Active Substance: CEPHALEXIN
     Dosage: UNK
     Dates: start: 20140708
  57. CIPROFLOXACIN. [Concomitant]
     Active Substance: CIPROFLOXACIN
     Indication: INFECTION
     Dosage: UNK
     Dates: start: 20160224
  58. DOXEPIN [Concomitant]
     Active Substance: DOXEPIN
     Dosage: UNK
     Dates: start: 20120413
  59. PRILOSEC [Suspect]
     Active Substance: OMEPRAZOLE MAGNESIUM
     Indication: DYSPEPSIA
     Dosage: 20 MILLIGRAM, BID
     Route: 048
     Dates: start: 20091001
  60. OMEPRAZOLE. [Suspect]
     Active Substance: OMEPRAZOLE
     Indication: GASTROOESOPHAGEAL REFLUX DISEASE
     Dosage: 40 MILLIGRAM
     Route: 048
     Dates: start: 1988
  61. CELEBREX [Concomitant]
     Active Substance: CELECOXIB
     Dosage: UNK
     Dates: start: 20110510
  62. VOLTARENE [Concomitant]
     Dosage: UNK
     Dates: start: 20130123
  63. TRAMADOL. [Concomitant]
     Active Substance: TRAMADOL
     Dosage: UNK
     Dates: start: 20140718
  64. TRAMADOL. [Concomitant]
     Active Substance: TRAMADOL
     Dosage: UNK
     Dates: start: 20101117
  65. TRAMADOL. [Concomitant]
     Active Substance: TRAMADOL
     Dosage: UNK
     Dates: start: 20180319
  66. AZITHROMYCIN ANHYDROUS. [Concomitant]
     Active Substance: AZITHROMYCIN ANHYDROUS
     Dosage: UNK
     Dates: start: 20140618
  67. DOXYCYCLINE MONOHYDRATE [Concomitant]
     Active Substance: DOXYCYCLINE
     Indication: INFECTION
     Dosage: UNK
     Dates: start: 20161128
  68. DOXYCYCLINE MONOHYDRATE [Concomitant]
     Active Substance: DOXYCYCLINE
     Dosage: UNK
     Dates: start: 20160718
  69. DOXYCYCLINE MONOHYDRATE [Concomitant]
     Active Substance: DOXYCYCLINE
     Dosage: UNK
     Dates: start: 20160618
  70. AMITRIPTYLINE [Concomitant]
     Active Substance: AMITRIPTYLINE
     Dosage: UNK
     Dates: start: 20140804
  71. AMITRIPTYLINE [Concomitant]
     Active Substance: AMITRIPTYLINE
     Dosage: UNK
     Dates: start: 20140708
  72. DOXEPIN [Concomitant]
     Active Substance: DOXEPIN
     Dosage: UNK
     Dates: start: 20120123
  73. ZANTAC [Concomitant]
     Active Substance: RANITIDINE HYDROCHLORIDE
     Dosage: UNK
     Dates: start: 2009
  74. ALKA?SELTZER [Concomitant]
     Active Substance: ANHYDROUS CITRIC ACID\ASPIRIN\SODIUM BICARBONATE
     Dosage: UNK
     Dates: start: 2000
  75. PREVACID [Suspect]
     Active Substance: LANSOPRAZOLE
     Indication: GASTROOESOPHAGEAL REFLUX DISEASE
     Dosage: 20 MILLIGRAM, BID
     Route: 048
     Dates: start: 20000601
  76. NEXIUM [Suspect]
     Active Substance: ESOMEPRAZOLE MAGNESIUM
     Indication: DYSPEPSIA
     Dosage: 40 MILLIGRAM, BID
     Route: 048
     Dates: start: 2009, end: 2013
  77. CELEBREX [Concomitant]
     Active Substance: CELECOXIB
     Dosage: UNK
     Dates: start: 20110211
  78. TRAMADOL. [Concomitant]
     Active Substance: TRAMADOL
     Dosage: UNK
     Dates: start: 20140818
  79. AZITHROMYCIN ANHYDROUS. [Concomitant]
     Active Substance: AZITHROMYCIN ANHYDROUS
     Dosage: UNK
     Dates: start: 20170721
  80. CEPHALEXIN. [Concomitant]
     Active Substance: CEPHALEXIN
     Indication: INFECTION
     Dosage: UNK
     Dates: start: 20150724
  81. VALSARTAN. [Concomitant]
     Active Substance: VALSARTAN
     Indication: HYPERTENSION
     Dosage: UNK
     Dates: start: 20150429
  82. DIOVAN [Concomitant]
     Active Substance: VALSARTAN
     Indication: HYPERTENSION
     Dosage: UNK
     Dates: start: 20121213, end: 20141030
  83. DOXYCYCLINE MONOHYDRATE [Concomitant]
     Active Substance: DOXYCYCLINE
     Dosage: UNK
     Dates: start: 20160523
  84. DOXYCYCLINE MONOHYDRATE [Concomitant]
     Active Substance: DOXYCYCLINE
     Dosage: UNK
     Dates: start: 20160208
  85. DOXYCYCLINE MONOHYDRATE [Concomitant]
     Active Substance: DOXYCYCLINE
     Dosage: UNK
     Dates: start: 20170213
  86. DOXYCYCLINE MONOHYDRATE [Concomitant]
     Active Substance: DOXYCYCLINE
     Dosage: UNK
     Dates: start: 20170117
  87. CELEBREX [Concomitant]
     Active Substance: CELECOXIB
     Dosage: UNK
     Dates: start: 20101109
  88. CELEBREX [Concomitant]
     Active Substance: CELECOXIB
     Dosage: UNK
     Dates: start: 20100916
  89. CELEBREX [Concomitant]
     Active Substance: CELECOXIB
     Dosage: UNK
     Dates: start: 20100721
  90. VOLTARENE [Concomitant]
     Dosage: UNK
     Dates: start: 20130506
  91. VOLTARENE [Concomitant]
     Dosage: UNK
     Dates: start: 20130413
  92. LEVOFLOXACIN. [Concomitant]
     Active Substance: LEVOFLOXACIN
     Dosage: UNK
     Dates: start: 20170321
  93. DOXYCYCLINE MONOHYDRATE [Concomitant]
     Active Substance: DOXYCYCLINE
     Dosage: UNK
     Dates: start: 20180824
  94. RANITIDINE. [Concomitant]
     Active Substance: RANITIDINE
     Dosage: UNK
     Dates: start: 2012
  95. TUMS [Concomitant]
     Active Substance: CALCIUM CARBONATE
     Indication: ANTACID THERAPY
     Dosage: UNK
     Dates: start: 2015
  96. ROLAIDS [Concomitant]
     Active Substance: CALCIUM CARBONATE\MAGNESIUM HYDROXIDE
     Indication: ANTACID THERAPY
     Dosage: UNK
     Dates: start: 2015
  97. ROLAIDS [Concomitant]
     Active Substance: CALCIUM CARBONATE\MAGNESIUM HYDROXIDE
     Dosage: UNK
     Dates: start: 2000
  98. ALKA?SELTZER [Concomitant]
     Active Substance: ANHYDROUS CITRIC ACID\ASPIRIN\SODIUM BICARBONATE
     Indication: ANTACID THERAPY
     Dosage: UNK
     Dates: start: 1993

REACTIONS (2)
  - Chronic kidney disease [Not Recovered/Not Resolved]
  - Acute kidney injury [Not Recovered/Not Resolved]

NARRATIVE: CASE EVENT DATE: 2016
